FAERS Safety Report 6158501-4 (Version None)
Quarter: 2009Q2

REPORT INFORMATION
  Report Type: 
  Country: None (occurrence: None)
  Receive Date: 20090415
  Receipt Date: 20090415
  Transmission Date: 20091009
  Serious: Yes (Other)
  Sender: FDA-Public Use
  Company Number: None

PATIENT
  Age: 64 Year
  Sex: Male
  Weight: 90.7194 kg

DRUGS (1)
  1. FLUOROPLEX [Suspect]
     Indication: ACTINIC KERATOSIS
     Dosage: TOPIACL CREAM TO FACE 2 X DAY
     Route: 061
     Dates: start: 20080621, end: 20080711

REACTIONS (4)
  - EXTRASYSTOLES [None]
  - GASTROINTESTINAL DISORDER [None]
  - HEADACHE [None]
  - NAUSEA [None]
